FAERS Safety Report 8115661-3 (Version None)
Quarter: 2012Q1

REPORT INFORMATION
  Report Type: 
  Country: None (occurrence: None)
  Receive Date: 20120206
  Receipt Date: 20120131
  Transmission Date: 20120608
  Serious: Yes (Hospitalization)
  Sender: FDA-Public Use
  Company Number: US-SANOFI-AVENTIS-2012SA006475

PATIENT
  Age: 29 Year
  Sex: Female
  Weight: 169.2 kg

DRUGS (1)
  1. LOVENOX [Suspect]
     Indication: PULMONARY EMBOLISM
     Dates: start: 20110101

REACTIONS (4)
  - PALPITATIONS [None]
  - INCORRECT ROUTE OF DRUG ADMINISTRATION [None]
  - MATERNAL EXPOSURE DURING PREGNANCY [None]
  - INJECTION SITE HAEMATOMA [None]
